FAERS Safety Report 5338776-1 (Version None)
Quarter: 2007Q2

REPORT INFORMATION
  Report Type: 
  Country: None (occurrence: None)
  Receive Date: 20070530
  Receipt Date: 20070517
  Transmission Date: 20071010
  Serious: Yes (Other)
  Sender: FDA-Public Use
  Company Number: US-KINGPHARMUSA00001-K200700612

PATIENT

DRUGS (3)
  1. SONATA [Suspect]
     Indication: INSOMNIA
     Dosage: UNK, QD
     Route: 048
     Dates: start: 20050101
  2. ALCOHOL /00002101/ [Suspect]
     Dosage: UNK, QD
  3. PAXIL [Concomitant]

REACTIONS (3)
  - AMNESIA [None]
  - IMPAIRED DRIVING ABILITY [None]
  - INAPPROPRIATE SCHEDULE OF DRUG ADMINISTRATION [None]
